FAERS Safety Report 13231414 (Version 2)
Quarter: 2017Q1

REPORT INFORMATION
  Report Type: Report from Study
  Country: US (occurrence: US)
  Receive Date: 20170214
  Receipt Date: 20170313
  Transmission Date: 20170428
  Serious: Yes (Hospitalization, Other)
  Sender: FDA-Public Use
  Company Number: US-JNJFOC-20160904767

PATIENT
  Age: 80 Year
  Sex: Male

DRUGS (16)
  1. CENTRUM SILVER [Concomitant]
     Active Substance: MINERALS\VITAMINS
  2. RISEDRONATE [Concomitant]
     Active Substance: RISEDRONATE SODIUM
  3. CLONIDINE. [Concomitant]
     Active Substance: CLONIDINE
  4. LASIX [Concomitant]
     Active Substance: FUROSEMIDE
  5. SENNA [Concomitant]
     Active Substance: SENNA LEAF\SENNOSIDES\SENNOSIDES A AND B
  6. CALCIUM CARBONATE W/VITAMIN D NOS [Concomitant]
     Active Substance: CALCIUM CARBONATE\VITAMIN D
  7. FUROSEMIDE. [Concomitant]
     Active Substance: FUROSEMIDE
  8. IMBRUVICA [Suspect]
     Active Substance: IBRUTINIB
     Indication: CHRONIC LYMPHOCYTIC LEUKAEMIA
     Route: 048
     Dates: end: 20170220
  9. ALLOPURINOL. [Concomitant]
     Active Substance: ALLOPURINOL
  10. ATENOLOL. [Concomitant]
     Active Substance: ATENOLOL
  11. NORVASC [Concomitant]
     Active Substance: AMLODIPINE BESYLATE
  12. IMBRUVICA [Suspect]
     Active Substance: IBRUTINIB
     Indication: CHRONIC LYMPHOCYTIC LEUKAEMIA
     Route: 048
     Dates: start: 20160826
  13. ASPIRIN. [Concomitant]
     Active Substance: ASPIRIN
  14. IMBRUVICA [Suspect]
     Active Substance: IBRUTINIB
     Indication: CHRONIC LYMPHOCYTIC LEUKAEMIA
     Route: 048
  15. COLACE [Concomitant]
     Active Substance: DOCUSATE SODIUM
  16. VALSARTAN. [Concomitant]
     Active Substance: VALSARTAN

REACTIONS (23)
  - Post procedural haemorrhage [Not Recovered/Not Resolved]
  - Somnolence [Not Recovered/Not Resolved]
  - Cough [Recovering/Resolving]
  - Off label use [Recovered/Resolved]
  - Haemorrhage [Not Recovered/Not Resolved]
  - Middle insomnia [Not Recovered/Not Resolved]
  - Acrochordon [Unknown]
  - Fall [Not Recovered/Not Resolved]
  - Pneumonia [Unknown]
  - Wound infection [Unknown]
  - Initial insomnia [Not Recovered/Not Resolved]
  - Wound haemorrhage [Unknown]
  - Hip fracture [Not Recovered/Not Resolved]
  - Muscle twitching [Not Recovered/Not Resolved]
  - Blood blister [Not Recovered/Not Resolved]
  - Skin haemorrhage [Not Recovered/Not Resolved]
  - Fatigue [Not Recovered/Not Resolved]
  - Incorrect dose administered [Recovered/Resolved]
  - Peripheral swelling [Not Recovered/Not Resolved]
  - Basal cell carcinoma [Not Recovered/Not Resolved]
  - White blood cell count decreased [Not Recovered/Not Resolved]
  - Angina bullosa haemorrhagica [Not Recovered/Not Resolved]
  - Peripheral swelling [Recovering/Resolving]

NARRATIVE: CASE EVENT DATE: 2016
